FAERS Safety Report 9041198 (Version 1)
Quarter: 2013Q1

REPORT INFORMATION
  Report Type: Spontaneous
  Country: US (occurrence: None)
  Receive Date: 20130123
  Receipt Date: 20130123
  Transmission Date: 20140127
  Serious: No
  Sender: FDA-Public Use
  Company Number: None

PATIENT
  Sex: 0

DRUGS (1)
  1. MEFLOQUINE [Suspect]

REACTIONS (10)
  - Hallucination [None]
  - Anxiety [None]
  - Stress [None]
  - Aggression [None]
  - Depression [None]
  - Paranoia [None]
  - Cold sweat [None]
  - Impaired work ability [None]
  - Marital problem [None]
  - Hypersomnia [None]
